FAERS Safety Report 19822185 (Version 1)
Quarter: 2021Q3

REPORT INFORMATION
  Report Type: Spontaneous
  Country: US (occurrence: US)
  Receive Date: 20210909
  Receipt Date: 20210909
  Transmission Date: 20211014
  Serious: No
  Sender: FDA-Public Use
  Company Number: None

PATIENT
  Age: 66 Year
  Sex: Male

DRUGS (1)
  1. ABIRATERONE TAB 250MG [Suspect]
     Active Substance: ABIRATERONE
     Route: 048
     Dates: start: 20191130

REACTIONS (4)
  - Lacrimal disorder [None]
  - Hypertension [None]
  - Hyperhidrosis [None]
  - Pollakiuria [None]

NARRATIVE: CASE EVENT DATE: 20210909
